FAERS Safety Report 9196889 (Version 2)
Quarter: 2013Q4

REPORT INFORMATION
  Report Type: Spontaneous
  Country: US (occurrence: US)
  Receive Date: 20130328
  Receipt Date: 20131127
  Transmission Date: 20140711
  Serious: Yes (Other)
  Sender: FDA-Public Use
  Company Number: US-BAYER-2013-038463

PATIENT
  Age: 22 Year
  Sex: Female

DRUGS (7)
  1. YAZ [Suspect]
     Indication: PREMENSTRUAL SYNDROME
     Dosage: UNK
  2. YASMIN [Suspect]
     Dosage: UNK
  3. OCELLA [Suspect]
     Dosage: UNK
  4. FLONASE [Concomitant]
  5. OMEPRAZOLE [Concomitant]
     Dosage: 40 MG, UNK
  6. AZITHROMYCIN [Concomitant]
     Dosage: 250 MG, UNK
  7. ZITHROMAX [Concomitant]

REACTIONS (5)
  - Gallbladder injury [None]
  - Biliary dyskinesia [None]
  - Injury [None]
  - Pain [None]
  - Pain [None]
